FAERS Safety Report 4865807-5 (Version None)
Quarter: 2005Q4

REPORT INFORMATION
  Report Type: 
  Country: None (occurrence: None)
  Receive Date: 20051220
  Receipt Date: 20051201
  Transmission Date: 20060501
  Serious: Yes (Other)
  Sender: FDA-Public Use
  Company Number: 230015M05CAN

PATIENT
  Sex: Female

DRUGS (1)
  1. REBIF [Suspect]
     Dates: start: 20050201, end: 20050901

REACTIONS (3)
  - DISEASE PROGRESSION [None]
  - LEUKAEMIA [None]
  - MULTIPLE SCLEROSIS [None]
